FAERS Safety Report 26110589 (Version 1)
Quarter: 2025Q4

REPORT INFORMATION
  Report Type: Spontaneous
  Country: US (occurrence: US)
  Receive Date: 20251202
  Receipt Date: 20251202
  Transmission Date: 20260117
  Serious: Yes (Hospitalization, Other)
  Sender: HIKMA
  Company Number: US-HIKMA PHARMACEUTICALS USA INC.-US-H14001-25-08927

PATIENT
  Age: 35 Year
  Sex: Female

DRUGS (3)
  1. LITHIUM [Suspect]
     Active Substance: LITHIUM
     Indication: Attention deficit hyperactivity disorder
     Dosage: UNK
     Route: 048
     Dates: end: 202412
  2. LITHIUM [Suspect]
     Active Substance: LITHIUM
     Indication: Intermittent explosive disorder
  3. LITHIUM [Suspect]
     Active Substance: LITHIUM
     Indication: Bipolar disorder

REACTIONS (3)
  - Renal failure [Recovered/Resolved]
  - Gait inability [Recovered/Resolved]
  - Polyuria [Recovered/Resolved]
